FAERS Safety Report 14618653 (Version 6)
Quarter: 2021Q4

REPORT INFORMATION
  Report Type: Report from Study
  Country: US (occurrence: US)
  Receive Date: 20180309
  Receipt Date: 20211230
  Transmission Date: 20220303
  Serious: Yes (Congenital Anomaly, Other)
  Sender: FDA-Public Use
  Company Number: US-JNJFOC-20180303707

PATIENT
  Age: 0 Day
  Sex: Female
  Weight: 2.075 kg

DRUGS (14)
  1. STELARA [Suspect]
     Active Substance: USTEKINUMAB
     Indication: Crohn^s disease
     Route: 064
     Dates: start: 20150215, end: 20170404
  2. STELARA [Suspect]
     Active Substance: USTEKINUMAB
     Indication: Psoriasis
     Route: 064
     Dates: start: 20170504, end: 20180101
  3. STELARA [Suspect]
     Active Substance: USTEKINUMAB
     Indication: Spondyloarthropathy
  4. AMOXICILLIN [Concomitant]
     Active Substance: AMOXICILLIN
     Indication: Urinary tract infection
     Route: 064
     Dates: start: 20170804, end: 20170810
  5. AUGMENTIN [Concomitant]
     Active Substance: AMOXICILLIN\CLAVULANATE POTASSIUM
     Indication: Sinusitis
     Route: 064
     Dates: start: 20171201, end: 20171211
  6. BENADRYL [Concomitant]
     Active Substance: DIPHENHYDRAMINE HYDROCHLORIDE
     Indication: Sleep disorder therapy
     Dosage: TOTAL 2
     Route: 064
     Dates: start: 20170620, end: 20170921
  7. BENZOYL PEROXIDE [Concomitant]
     Active Substance: BENZOYL PEROXIDE
     Indication: Psoriasis
     Route: 064
     Dates: start: 20171120, end: 20180101
  8. FISH OIL [Concomitant]
     Active Substance: FISH OIL
     Route: 064
     Dates: start: 20170426, end: 20180101
  9. MACROBID [Concomitant]
     Active Substance: NITROFURANTOIN\NITROFURANTOIN MONOHYDRATE
     Indication: Urinary tract infection
     Route: 064
     Dates: start: 20170707, end: 20170713
  10. MACROBID [Concomitant]
     Active Substance: NITROFURANTOIN\NITROFURANTOIN MONOHYDRATE
     Route: 064
     Dates: start: 20170821, end: 20170827
  11. MACROBID [Concomitant]
     Active Substance: NITROFURANTOIN\NITROFURANTOIN MONOHYDRATE
     Route: 064
     Dates: start: 20170828, end: 20171130
  12. ADSORBED DIPHTHERIA-PERTUSSIS-TETANUS VACCINE [Concomitant]
     Route: 064
  13. VALACYCLOVIR [Concomitant]
     Active Substance: VALACYCLOVIR HYDROCHLORIDE
     Indication: Herpes virus infection
     Route: 064
     Dates: start: 20170426, end: 20180101
  14. ZYRTEC [Concomitant]
     Active Substance: CETIRIZINE HYDROCHLORIDE
     Indication: Multiple allergies
     Route: 064
     Dates: start: 20170905, end: 20171215

REACTIONS (5)
  - Intussusception [Unknown]
  - Haemangioma [Unknown]
  - Premature baby [Not Recovered/Not Resolved]
  - Respiratory syncytial virus infection [Unknown]
  - Foetal exposure during pregnancy [Recovered/Resolved]

NARRATIVE: CASE EVENT DATE: 20180101
